FAERS Safety Report 18474430 (Version 2)
Quarter: 2021Q2

REPORT INFORMATION
  Report Type: Spontaneous
  Country: US (occurrence: US)
  Receive Date: 20201106
  Receipt Date: 20210422
  Transmission Date: 20210717
  Serious: Yes (Other)
  Sender: FDA-Public Use
  Company Number: US-ASTRAZENECA-2020SF43739

PATIENT
  Age: 25356 Day
  Sex: Male
  Weight: 95.3 kg

DRUGS (31)
  1. NEXIUM 24HR [Suspect]
     Active Substance: ESOMEPRAZOLE MAGNESIUM
     Indication: GASTROOESOPHAGEAL REFLUX DISEASE
     Route: 048
     Dates: start: 2010
  2. MELATONIN [Concomitant]
     Active Substance: MELATONIN
  3. PRILOSEC OTC [Suspect]
     Active Substance: OMEPRAZOLE MAGNESIUM
     Indication: GASTROOESOPHAGEAL REFLUX DISEASE
     Route: 048
     Dates: start: 2011, end: 2014
  4. PREVACID 24 HR [Suspect]
     Active Substance: LANSOPRAZOLE
     Indication: GASTROOESOPHAGEAL REFLUX DISEASE
     Route: 065
     Dates: start: 2011, end: 2012
  5. EQUATE [Concomitant]
     Indication: CARDIAC DISORDER
  6. ROLAIDS [Concomitant]
     Active Substance: CALCIUM CARBONATE\MAGNESIUM HYDROXIDE
  7. CYCLOBENZAPRINE. [Concomitant]
     Active Substance: CYCLOBENZAPRINE
  8. ONDANSETRON [Concomitant]
     Active Substance: ONDANSETRON
  9. OMEPRAZOLE. [Suspect]
     Active Substance: OMEPRAZOLE
     Indication: GASTROOESOPHAGEAL REFLUX DISEASE
     Route: 048
     Dates: start: 20131120
  10. LISINOPRIL. [Concomitant]
     Active Substance: LISINOPRIL
     Indication: HYPERTENSION
  11. CINNAMON. [Concomitant]
     Active Substance: CINNAMON
     Indication: DIABETES MELLITUS
  12. PEPCID [Concomitant]
     Active Substance: FAMOTIDINE
  13. GLIMEPIRIDE. [Concomitant]
     Active Substance: GLIMEPIRIDE
  14. CLOPIDOGREL [Concomitant]
     Active Substance: CLOPIDOGREL BISULFATE
  15. VITAMIN C [Concomitant]
     Active Substance: ASCORBIC ACID
  16. TUMS [Concomitant]
     Active Substance: CALCIUM CARBONATE
  17. PAROXETINE. [Concomitant]
     Active Substance: PAROXETINE
  18. NEXIUM [Suspect]
     Active Substance: ESOMEPRAZOLE MAGNESIUM
     Route: 048
     Dates: start: 2010
  19. NEXIUM 24HR [Suspect]
     Active Substance: ESOMEPRAZOLE MAGNESIUM
     Indication: GASTROOESOPHAGEAL REFLUX DISEASE
     Route: 048
     Dates: start: 2014
  20. OMEPRAZOLE. [Suspect]
     Active Substance: OMEPRAZOLE
     Indication: GASTROOESOPHAGEAL REFLUX DISEASE
     Route: 065
     Dates: start: 2012, end: 2014
  21. PRAVASTATIN. [Concomitant]
     Active Substance: PRAVASTATIN
     Indication: BLOOD CHOLESTEROL INCREASED
  22. CHERATUSSIN [Concomitant]
     Active Substance: AMMONIUM CHLORIDE\DEXTROMETHORPHAN\SODIUM CITRATE
  23. VIAGRA [Concomitant]
     Active Substance: SILDENAFIL CITRATE
  24. DICLOFENAC [Concomitant]
     Active Substance: DICLOFENAC
  25. OMEPRAZOLE. [Suspect]
     Active Substance: OMEPRAZOLE
     Indication: GASTROOESOPHAGEAL REFLUX DISEASE
     Route: 065
     Dates: start: 2010
  26. ASPIRIN. [Concomitant]
     Active Substance: ASPIRIN
     Indication: CARDIAC DISORDER
  27. ZANTAC [Concomitant]
     Active Substance: RANITIDINE HYDROCHLORIDE
  28. LUNESTA [Concomitant]
     Active Substance: ESZOPICLONE
  29. TRAMADOL. [Concomitant]
     Active Substance: TRAMADOL
     Indication: PAIN
  30. CEFUROXIME. [Concomitant]
     Active Substance: CEFUROXIME
  31. CIALIS [Concomitant]
     Active Substance: TADALAFIL

REACTIONS (6)
  - Follicular lymphoma [Not Recovered/Not Resolved]
  - Rebound acid hypersecretion [Not Recovered/Not Resolved]
  - Retroperitoneal lymphadenopathy [Not Recovered/Not Resolved]
  - Chronic lymphocytic leukaemia [Unknown]
  - Abdominal lymphadenopathy [Not Recovered/Not Resolved]
  - Gastric cancer [Unknown]

NARRATIVE: CASE EVENT DATE: 20150921
